FAERS Safety Report 7456925-6 (Version None)
Quarter: 2011Q1

REPORT INFORMATION
  Report Type: 
  Country: None (occurrence: None)
  Receive Date: 20110302
  Receipt Date: 20110120
  Transmission Date: 20110831
  Serious: Yes (Hospitalization)
  Sender: FDA-Public Use
  Company Number: 006826

PATIENT
  Sex: Male

DRUGS (5)
  1. PENTASA [Concomitant]
  2. CIMZIA [Suspect]
     Indication: CROHN'S DISEASE
     Dosage: 400 MG 1X/4 WEEKS SUBCUTANEOUS
     Route: 058
     Dates: start: 20090919, end: 20100513
  3. HYDROCHLOROTHIAZIDE [Concomitant]
  4. PREDNISONE TAB [Concomitant]
  5. LISINOPRIL [Concomitant]

REACTIONS (1)
  - CROHN'S DISEASE [None]
